FAERS Safety Report 14138642 (Version 1)
Quarter: 2017Q4

REPORT INFORMATION
  Report Type: Spontaneous
  Country: US (occurrence: US)
  Receive Date: 20171027
  Receipt Date: 20171027
  Transmission Date: 20180321
  Serious: No
  Sender: FDA-Public Use
  Company Number: US-MIST-TIR-2017-0880

PATIENT
  Age: 40 Year
  Sex: Female

DRUGS (3)
  1. TIROSINT [Suspect]
     Active Substance: LEVOTHYROXINE SODIUM
     Dosage: ONE 100MCG CAPSULE DAILY
     Route: 048
     Dates: start: 20170904
  2. LEXAPRO [Concomitant]
     Active Substance: ESCITALOPRAM OXALATE
     Indication: PRODUCT USED FOR UNKNOWN INDICATION
  3. TIROSINT [Suspect]
     Active Substance: LEVOTHYROXINE SODIUM
     Indication: HYPOTHYROIDISM
     Dosage: ONE 100MCG CAPSULE DAILY
     Route: 048
     Dates: start: 2015, end: 20170903

REACTIONS (3)
  - Dry mouth [Unknown]
  - Tongue discolouration [Unknown]
  - Tongue discomfort [Unknown]

NARRATIVE: CASE EVENT DATE: 201709
